FAERS Safety Report 7650681-4 (Version None)
Quarter: 2011Q3

REPORT INFORMATION
  Report Type: 
  Country: None (occurrence: None)
  Receive Date: 20110802
  Receipt Date: 20110724
  Transmission Date: 20111222
  Serious: Yes (Death, Hospitalization)
  Sender: FDA-Public Use
  Company Number: PL-ELI_LILLY_AND_COMPANY-PL201107003758

PATIENT
  Sex: Female
  Weight: 60 kg

DRUGS (13)
  1. HEMOFER [Concomitant]
     Dosage: UNK
     Dates: start: 20110707
  2. METOCLOPRAMIDE [Concomitant]
     Dosage: UNK, TID
     Dates: start: 20110709
  3. ONDANSETRON [Concomitant]
     Dosage: UNK
     Dates: start: 20110707
  4. FUROSEMIDE [Concomitant]
     Dosage: UNK
     Dates: start: 20110707
  5. FRAXIPARINE [Concomitant]
     Dosage: UNK
     Dates: start: 20110710
  6. NECITUMUMAB (11F8) (LY3012211) [Suspect]
     Indication: NON-SMALL CELL LUNG CANCER STAGE IV
     Dosage: 800 MG, OTHER
     Dates: start: 20110613, end: 20110712
  7. GEMCITABINE HYDROCHLORIDE [Suspect]
     Indication: NON-SMALL CELL LUNG CANCER STAGE IV
     Dosage: 2000 MG, OTHER
     Dates: start: 20110613, end: 20110712
  8. RANIGAST [Concomitant]
     Dosage: 150 MG, UNK
     Route: 048
     Dates: start: 20110703
  9. FOLIC ACID [Concomitant]
     Dosage: UNK
     Dates: start: 20110707
  10. EUPHYLLIN CR [Concomitant]
     Dosage: 2 UNK, UNK
     Dates: start: 20110706
  11. CISPLATIN [Suspect]
     Indication: NON-SMALL CELL LUNG CANCER STAGE IV
     Dosage: 120 MG, OTHER
     Dates: start: 20110613, end: 20110712
  12. KALIUM [Concomitant]
     Dosage: UNK
     Dates: start: 20110712, end: 20110713
  13. GLUCOSE [Concomitant]
     Dosage: UNK
     Dates: start: 20110713, end: 20110713

REACTIONS (1)
  - GENERAL PHYSICAL HEALTH DETERIORATION [None]
